FAERS Safety Report 22164555 (Version 2)
Quarter: 2023Q2

REPORT INFORMATION
  Report Type: Report from Study
  Country: EG (occurrence: EG)
  Receive Date: 20230403
  Receipt Date: 20230417
  Transmission Date: 20230721
  Serious: Yes (Other)
  Sender: FDA-Public Use
  Company Number: EG-002147023-NVSC2023EG073335

PATIENT
  Age: 51 Year
  Sex: Male

DRUGS (2)
  1. HYRIMOZ [Suspect]
     Active Substance: ADALIMUMAB-ADAZ
     Indication: Rheumatoid arthritis
     Dosage: 40 MG, Q2W (STOPPED 3 MONTHS AGO) EVERY OTHER WEEK
     Route: 058
     Dates: start: 202201, end: 202212
  2. LEFLUNOMIDE [Concomitant]
     Active Substance: LEFLUNOMIDE
     Indication: Product used for unknown indication
     Dosage: UNK UNK, QD (3 MONTHS AGO)
     Route: 065
     Dates: start: 20230101

REACTIONS (6)
  - Arthralgia [Recovering/Resolving]
  - Gait disturbance [Recovered/Resolved]
  - Joint swelling [Recovering/Resolving]
  - Night blindness [Not Recovered/Not Resolved]
  - Acne [Recovered/Resolved]
  - Rash [Recovered/Resolved]

NARRATIVE: CASE EVENT DATE: 20220201
